FAERS Safety Report 20842210 (Version 2)
Quarter: 2022Q2

REPORT INFORMATION
  Report Type: Other
  Country: IL (occurrence: IL)
  Receive Date: 20220518
  Receipt Date: 20220519
  Transmission Date: 20220721
  Serious: Yes (Hospitalization)
  Sender: FDA-Public Use
  Company Number: IL-DEXPHARM-20220700

PATIENT
  Age: 46 Year
  Sex: Female

DRUGS (15)
  1. ASPIRIN [Interacting]
     Active Substance: ASPIRIN
     Indication: Prophylaxis
  2. MAGNESIUM SULFATE [Interacting]
     Active Substance: MAGNESIUM SULFATE
     Indication: Prophylaxis
  3. CEFAZOLIN [Concomitant]
     Active Substance: CEFAZOLIN
  4. PHENYLEPHRINE [Concomitant]
     Active Substance: PHENYLEPHRINE HYDROCHLORIDE
  5. FENTANYL [Concomitant]
     Active Substance: FENTANYL
     Route: 024
  6. MORPHINE [Concomitant]
     Active Substance: MORPHINE
     Route: 024
  7. DEXACORT [Concomitant]
     Active Substance: DEXAMETHASONE SODIUM PHOSPHATE
  8. ONDANSETRON [Concomitant]
     Active Substance: ONDANSETRON
  9. VOLTAREN [Interacting]
     Active Substance: DICLOFENAC SODIUM
  10. OXYTOCIN [Concomitant]
     Active Substance: OXYTOCIN
     Dosage: 20U
     Route: 040
  11. LMW-heparin [Concomitant]
     Indication: Thrombosis prophylaxis
  12. LABETALOL [Interacting]
     Active Substance: LABETALOL\LABETALOL HYDROCHLORIDE
     Indication: Hypertension
     Route: 041
  13. LABETALOL [Interacting]
     Active Substance: LABETALOL\LABETALOL HYDROCHLORIDE
     Dosage: THRICE DAILY
     Route: 048
  14. ACETAMINOPHEN [Interacting]
     Active Substance: ACETAMINOPHEN
     Indication: Analgesic therapy
  15. TRAMADOL [Concomitant]
     Active Substance: TRAMADOL

REACTIONS (6)
  - Hypertension [Recovered/Resolved]
  - Dyspnoea [Recovered/Resolved]
  - Hypertension [Recovered/Resolved]
  - Acute pulmonary oedema [Recovered/Resolved]
  - Drug ineffective for unapproved indication [Recovered/Resolved]
  - Drug interaction [Recovered/Resolved]
